FAERS Safety Report 9027171 (Version 1)
Quarter: 2013Q1

REPORT INFORMATION
  Report Type: Spontaneous
  Country: FR (occurrence: FR)
  Receive Date: 20130123
  Receipt Date: 20130123
  Transmission Date: 20140127
  Serious: Yes (Hospitalization)
  Sender: FDA-Public Use
  Company Number: FR-GLAXOSMITHKLINE-B0860516A

PATIENT
  Age: 22 None
  Sex: Male

DRUGS (4)
  1. LAMICTAL [Suspect]
     Indication: EPILEPSY
     Dosage: 350MG PER DAY
     Route: 048
     Dates: start: 20100308, end: 20121213
  2. AVLOCARDYL [Concomitant]
     Indication: HEADACHE
     Dosage: .5UNIT TWICE PER DAY
     Route: 065
     Dates: start: 201210
  3. EUPANTOL [Concomitant]
     Dosage: 40MG PER DAY
     Route: 065
  4. VALIUM [Concomitant]
     Dosage: 5MG PER DAY
     Route: 065

REACTIONS (8)
  - Lung disorder [Recovering/Resolving]
  - Fatigue [Recovering/Resolving]
  - Dyspnoea [Recovering/Resolving]
  - Nodule [Unknown]
  - Lymphadenopathy mediastinal [Unknown]
  - Pulmonary arterial hypertension [Unknown]
  - Cardiomegaly [Unknown]
  - Hypersensitivity [Recovering/Resolving]
